FAERS Safety Report 9192641 (Version 1)
Quarter: 2013Q1

REPORT INFORMATION
  Report Type: Spontaneous
  Country: US (occurrence: None)
  Receive Date: 20130325
  Receipt Date: 20130325
  Transmission Date: 20140127
  Serious: Yes (Hospitalization)
  Sender: FDA-Public Use
  Company Number: None

PATIENT
  Age: 62 Year
  Sex: Male

DRUGS (2)
  1. PEGASYS [Suspect]
     Indication: HEPATITIS C VIRUS TEST
     Dosage: 180MCG WEEKLY SQ
     Route: 058
     Dates: start: 20121108, end: 20130317
  2. RIBAVIRIN [Suspect]
     Indication: HEPATITIS C VIRUS TEST
     Dosage: 1000 MG  DAILY  PO
     Route: 048
     Dates: start: 20121108, end: 20130317

REACTIONS (1)
  - Pancreatitis [None]
